FAERS Safety Report 8185633-1 (Version None)
Quarter: 2012Q1

REPORT INFORMATION
  Report Type: 
  Country: None (occurrence: None)
  Receive Date: 20120305
  Receipt Date: 20120221
  Transmission Date: 20120608
  Serious: No
  Sender: FDA-Public Use
  Company Number: US-BAYER-2012-017257

PATIENT
  Age: 67 Year
  Sex: Female

DRUGS (2)
  1. FINACEA [Suspect]
     Dosage: UNK
     Dates: start: 20120219, end: 20120220
  2. FINACEA [Suspect]
     Indication: ROSACEA
     Dosage: UNK UNK, BID
     Route: 061
     Dates: start: 20120211

REACTIONS (1)
  - SKIN BURNING SENSATION [None]
